FAERS Safety Report 15240827 (Version 2)
Quarter: 2018Q3

REPORT INFORMATION
  Report Type: Spontaneous
  Country: AU (occurrence: AU)
  Receive Date: 20180804
  Receipt Date: 20180819
  Transmission Date: 20181010
  Serious: Yes (Death)
  Sender: FDA-Public Use
  Company Number: AU-009507513-1807AUS011599

PATIENT
  Age: 72 Year
  Sex: Male

DRUGS (1)
  1. IVERMECTIN. [Suspect]
     Active Substance: IVERMECTIN
     Indication: STRONGYLOIDIASIS
     Dosage: 200 MCG/KG DAILY
     Route: 045

REACTIONS (2)
  - Strongyloidiasis [Fatal]
  - Drug ineffective [Unknown]
